FAERS Safety Report 4714602-6 (Version None)
Quarter: 2005Q3

REPORT INFORMATION
  Report Type: 
  Country: None (occurrence: None)
  Receive Date: 20050714
  Receipt Date: 20050714
  Transmission Date: 20060218
  Serious: Yes (Hospitalization)
  Sender: FDA-Public Use
  Company Number: None

PATIENT
  Age: 74 Year
  Sex: Male
  Weight: 78.9259 kg

DRUGS (2)
  1. TIROFIBAN 0.25 MG/ML [Suspect]
     Dosage: 800 MCG LOADING DOSE INTRAVENOUS
     Route: 042
  2. TIROFIBAN 0.25 MG/ML [Suspect]
     Dosage: 400 MCG HR INTRAVENOU
     Route: 042

REACTIONS (1)
  - PLATELET COUNT DECREASED [None]
